FAERS Safety Report 5835872-7 (Version None)
Quarter: 2008Q3

REPORT INFORMATION
  Report Type: 
  Country: None (occurrence: None)
  Receive Date: 20080730
  Receipt Date: 20070811
  Transmission Date: 20090109
  Serious: Yes (Other)
  Sender: FDA-Public Use
  Company Number: 39854

PATIENT
  Age: 79 Year
  Sex: Female
  Weight: 60.782 kg

DRUGS (2)
  1. PACLITAXEL [Suspect]
     Indication: BREAST CANCER
     Dosage: 300MG/IV/ EVERY 4 WEEKS WEEKLY
     Route: 042
     Dates: start: 20070711
  2. CARBOPLATIN [Concomitant]

REACTIONS (1)
  - BACK PAIN [None]
